FAERS Safety Report 13134813 (Version 6)
Quarter: 2017Q3

REPORT INFORMATION
  Report Type: Spontaneous
  Country: KR (occurrence: KR)
  Receive Date: 20170120
  Receipt Date: 20170801
  Transmission Date: 20171127
  Serious: Yes (Hospitalization)
  Sender: FDA-Public Use
  Company Number: KR-009507513-1701KOR007969

PATIENT
  Age: 54 Year
  Sex: Male
  Weight: 65 kg

DRUGS (32)
  1. HERCEPTIN [Concomitant]
     Active Substance: TRASTUZUMAB
     Dosage: 426 MG, ONCE; CYCLE 2
     Route: 042
     Dates: start: 20160610, end: 20160610
  2. XELCATABINE [Concomitant]
     Dosage: 1740 MG, TWICE A DAY; CYCLE 2
     Route: 048
     Dates: start: 20160610
  3. MATRIFEN [Concomitant]
     Active Substance: FENTANYL
     Indication: CANCER PAIN
     Dosage: 50 MICROGRAM, DAILY; STRENGTH: 25MCG/H, 8.4CM2
     Route: 003
     Dates: start: 20160511, end: 20160514
  4. DEXAMETHASONE. [Concomitant]
     Active Substance: DEXAMETHASONE
     Indication: PROPHYLAXIS OF NAUSEA AND VOMITING
     Dosage: 3.75 MG, TWICE A DAY
     Route: 048
     Dates: start: 20160520, end: 20160524
  5. LEXAPRO [Concomitant]
     Active Substance: ESCITALOPRAM OXALATE
     Indication: DYSPEPSIA
     Dosage: 15 MG, ONCE A DAY
     Route: 048
     Dates: start: 20160516, end: 20160603
  6. MANNITOL. [Concomitant]
     Active Substance: MANNITOL
     Dosage: 100 ML, ONCE (STRENGTH 15%/100ML)
     Route: 042
     Dates: start: 20160520, end: 20160520
  7. MANNITOL. [Concomitant]
     Active Substance: MANNITOL
     Dosage: 100 ML, ONCE (STRENGTH 15%/100ML)
     Route: 042
     Dates: start: 20160610, end: 20160610
  8. MATRIFEN [Concomitant]
     Active Substance: FENTANYL
     Dosage: 50 MICROGRAM, DAILY; STRENGTH: 25MCG/H, 8.4CM2
     Route: 003
     Dates: start: 20160625
  9. SODIUM ALGINATE [Concomitant]
     Active Substance: SODIUM ALGINATE
     Indication: DYSPEPSIA
     Dosage: 20 ML, THREE TIMES A DAY
     Route: 048
     Dates: start: 20160524, end: 20160603
  10. MATRIFEN [Concomitant]
     Active Substance: FENTANYL
     Dosage: 75 MICROGRAM, DAILY; STRENGTH: 25MCG/H, 8.4CM2
     Route: 003
     Dates: start: 20160519, end: 20160519
  11. MATRIFEN [Concomitant]
     Active Substance: FENTANYL
     Dosage: 25 MICROGRAM, DAILY; STRENGTH: 25MCG/H, 8.4CM2
     Route: 003
     Dates: start: 20160520, end: 20160520
  12. MATRIFEN [Concomitant]
     Active Substance: FENTANYL
     Dosage: 100 MICROGRAM, DAILY; STRENGTH: 25MCG/H, 8.4CM2
     Route: 003
     Dates: start: 20160522, end: 20160624
  13. EMEND (FOSAPREPITANT DIMEGLUMINE) [Suspect]
     Active Substance: FOSAPREPITANT DIMEGLUMINE
     Dosage: 150 MG, ONCE
     Route: 042
     Dates: start: 20160610, end: 20160610
  14. CISPLATIN. [Concomitant]
     Active Substance: CISPLATIN
     Indication: GASTRIC CANCER
     Dosage: 100 MG, ONCE, CYCLE 1;STRENGTH: 50 MG/100 ML
     Route: 042
     Dates: start: 20160520, end: 20160520
  15. XELCATABINE [Concomitant]
     Indication: GASTRIC CANCER
     Dosage: 1000 MG, TWICE A DAY; CYCLE 1
     Route: 048
     Dates: start: 20160520, end: 20160530
  16. DEXAMETHASONE SODIUM PHOSPHATE. [Concomitant]
     Active Substance: DEXAMETHASONE SODIUM PHOSPHATE
     Indication: PROPHYLAXIS OF NAUSEA AND VOMITING
     Dosage: 10 MG, ONCE
     Route: 042
     Dates: start: 20160520, end: 20160520
  17. DEXAMETHASONE. [Concomitant]
     Active Substance: DEXAMETHASONE
     Dosage: 3.75 MG, TWICE A DAY
     Route: 048
     Dates: start: 20160610, end: 20160613
  18. MACPERAN [Concomitant]
     Active Substance: METOCLOPRAMIDE HYDROCHLORIDE
     Indication: DYSPEPSIA
     Dosage: 1 TABLET, THREE TIMES A DAY
     Route: 048
     Dates: start: 20160524, end: 20160603
  19. IRCODON [Concomitant]
     Active Substance: OXYCODONE HYDROCHLORIDE
     Indication: CANCER PAIN
     Dosage: 10 MG, ONCE A DAY
     Route: 048
     Dates: start: 20160524, end: 20160603
  20. DEXAMETHASONE SODIUM PHOSPHATE. [Concomitant]
     Active Substance: DEXAMETHASONE SODIUM PHOSPHATE
     Dosage: 10 MG, ONCE
     Route: 042
     Dates: start: 20160610, end: 20160610
  21. ALOXI [Concomitant]
     Active Substance: PALONOSETRON HYDROCHLORIDE
     Indication: PROPHYLAXIS OF NAUSEA AND VOMITING
     Dosage: 0.25 MG, ONCE
     Route: 042
     Dates: start: 20160520, end: 20160520
  22. LANSTON [Concomitant]
     Active Substance: LANSOPRAZOLE
     Indication: DYSPEPSIA
     Dosage: 1 TABLET (30 MG), DAILY
     Route: 048
     Dates: start: 20160516
  23. MATRIFEN [Concomitant]
     Active Substance: FENTANYL
     Dosage: 25 MICROGRAM, DAILY; STRENGTH: 25MCG/H, 8.4CM2
     Route: 003
     Dates: start: 20160515, end: 20160515
  24. MATRIFEN [Concomitant]
     Active Substance: FENTANYL
     Dosage: 50 MICROGRAM, DAILY; STRENGTH: 25MCG/H, 8.4CM2
     Route: 003
     Dates: start: 20160517, end: 20160517
  25. EMEND (FOSAPREPITANT DIMEGLUMINE) [Suspect]
     Active Substance: FOSAPREPITANT DIMEGLUMINE
     Indication: PROPHYLAXIS OF NAUSEA AND VOMITING
     Dosage: 150 MG, ONCE
     Route: 042
     Dates: start: 20160520, end: 20160520
  26. CISPLATIN. [Concomitant]
     Active Substance: CISPLATIN
     Dosage: 104.4 MG, ONCE; CYCLE 2; STRENGTH: 50 MG/100 ML
     Route: 042
     Dates: start: 20160610, end: 20160610
  27. ALOXI [Concomitant]
     Active Substance: PALONOSETRON HYDROCHLORIDE
     Dosage: 0.25 MG, ONCE
     Route: 042
     Dates: start: 20160610, end: 20160610
  28. ULCERLMIN [Concomitant]
     Active Substance: SUCRALFATE
     Indication: DYSPEPSIA
     Dosage: STRENGTH 1G/15ML; 15 ML, TID
     Route: 048
     Dates: start: 20160516, end: 20160603
  29. LASIX [Concomitant]
     Active Substance: FUROSEMIDE
     Dosage: 20 MG, ONCE (STRENGTH 20MG/2ML)
     Route: 042
     Dates: start: 20160610, end: 20160610
  30. HERCEPTIN [Concomitant]
     Active Substance: TRASTUZUMAB
     Indication: GASTRIC CANCER
     Dosage: 520 MG, ONCE, CYCLE 1
     Route: 042
     Dates: start: 20160520, end: 20160520
  31. LASIX [Concomitant]
     Active Substance: FUROSEMIDE
     Indication: PROPHYLAXIS
     Dosage: 20 MG, ONCE (STRENGTH 20MG/2ML)
     Route: 042
     Dates: start: 20160520, end: 20160520
  32. GODEX (ADENINE HYDROCHLORIDE (+) BIFENDATE (+) CARNITINE OROTATE (+) C [Concomitant]
     Indication: PROPHYLAXIS
     Dosage: 1 CAPSULE, TID
     Route: 048
     Dates: start: 20160603, end: 20160802

REACTIONS (4)
  - Drug ineffective [Unknown]
  - Jaundice [Recovered/Resolved]
  - Nausea [Recovered/Resolved]
  - Vomiting [Recovered/Resolved]

NARRATIVE: CASE EVENT DATE: 20160610
